FAERS Safety Report 5622406-5 (Version None)
Quarter: 2008Q1

REPORT INFORMATION
  Report Type: 
  Country: None (occurrence: None)
  Receive Date: 20080211
  Receipt Date: 20080206
  Transmission Date: 20080703
  Serious: Yes (Hospitalization)
  Sender: FDA-Public Use
  Company Number: US-GILEAD-2007-0014588

PATIENT
  Age: 39 Year
  Sex: Female
  Weight: 59.1 kg

DRUGS (4)
  1. TRUVADA [Suspect]
     Indication: HIV INFECTION
     Dosage: 300/200
     Route: 048
     Dates: start: 20070530
  2. ALUVIA [Concomitant]
     Indication: HIV INFECTION
     Dosage: 400/100
     Route: 048
     Dates: start: 20070727
  3. SEPTRIN [Concomitant]
     Route: 065
  4. VITACAP [Concomitant]
     Route: 065

REACTIONS (4)
  - BLOOD ALKALINE PHOSPHATASE INCREASED [None]
  - HEPATOMEGALY [None]
  - PELVIC INFLAMMATORY DISEASE [None]
  - PEPTIC ULCER [None]
